FAERS Safety Report 11928567 (Version 1)
Quarter: 2016Q1

REPORT INFORMATION
  Report Type: Spontaneous
  Country: US (occurrence: US)
  Receive Date: 20160119
  Receipt Date: 20160119
  Transmission Date: 20160526
  Serious: Yes (Death, Hospitalization, Other)
  Sender: FDA-Public Use
  Company Number: US-GLAXOSMITHKLINE-US2016006708

PATIENT
  Age: 74 Year
  Sex: Male

DRUGS (6)
  1. FLOMAX [Concomitant]
     Active Substance: TAMSULOSIN HYDROCHLORIDE
  2. DUONEB [Concomitant]
     Active Substance: ALBUTEROL SULFATE\IPRATROPIUM BROMIDE
  3. MORPHINE [Concomitant]
     Active Substance: MORPHINE
  4. FENTANYL. [Concomitant]
     Active Substance: FENTANYL
  5. VENTOLIN [Concomitant]
     Active Substance: ALBUTEROL SULFATE
  6. ADVAIR HFA [Suspect]
     Active Substance: FLUTICASONE PROPIONATE\SALMETEROL XINAFOATE
     Indication: CHRONIC OBSTRUCTIVE PULMONARY DISEASE
     Dosage: UNK, BID
     Route: 055
     Dates: start: 201512

REACTIONS (2)
  - Death [Fatal]
  - Myelodysplastic syndrome [Unknown]

NARRATIVE: CASE EVENT DATE: 201512
